FAERS Safety Report 8303731-6 (Version None)
Quarter: 2012Q1

REPORT INFORMATION
  Report Type: 
  Country: None (occurrence: None)
  Receive Date: 20120326
  Receipt Date: 20111101
  Transmission Date: 20120608
  Serious: Yes (Other)
  Sender: FDA-Public Use
  Company Number: PHEH2011US06430

PATIENT
  Age: 62 Year
  Sex: Male
  Weight: 174 kg

DRUGS (6)
  1. ALLEGRA [Concomitant]
  2. TASIGNA [Suspect]
     Indication: CHRONIC MYELOID LEUKAEMIA
     Dosage: 400 MG, BID
     Dates: start: 20110920
  3. AMBIEN CR [Concomitant]
  4. NAPROXEN (ALEVE) [Concomitant]
  5. FLONASE [Concomitant]
  6. METFORMIN HCL [Concomitant]

REACTIONS (1)
  - RASH [None]
